FAERS Safety Report 6303804-3 (Version None)
Quarter: 2009Q3

REPORT INFORMATION
  Report Type: 
  Country: None (occurrence: None)
  Receive Date: 20090810
  Receipt Date: 20090805
  Transmission Date: 20100115
  Serious: Yes (Life-Threatening, Hospitalization)
  Sender: FDA-Public Use
  Company Number: FR-MERCK-0807FRA00011

PATIENT
  Age: 14 Year
  Sex: Male

DRUGS (15)
  1. VASOTEC [Suspect]
     Indication: HYPERTENSION
     Route: 048
     Dates: end: 20080801
  2. COZAAR [Suspect]
     Indication: HYPERTENSION
     Route: 048
     Dates: start: 20080426, end: 20080801
  3. TACROLIMUS [Suspect]
     Indication: LUNG TRANSPLANT
     Route: 048
     Dates: start: 20020101
  4. LEFLUNOMIDE [Concomitant]
     Route: 048
     Dates: start: 20080424
  5. ACEBUTOLOL [Concomitant]
     Indication: HYPERTENSION
     Route: 048
  6. NIFEDIPINE [Concomitant]
     Indication: HYPERTENSION
     Route: 048
  7. GUANFACINE HYDROCHLORIDE [Concomitant]
     Indication: HYPERTENSION
     Route: 048
     Dates: start: 20080522
  8. PREDNISONE [Concomitant]
     Indication: LUNG TRANSPLANT
     Route: 048
     Dates: start: 20020101
  9. OMEPRAZOLE [Concomitant]
     Indication: PROPHYLAXIS AGAINST GASTROINTESTINAL ULCER
     Route: 048
  10. SULFAMETHOXAZOLE AND TRIMETHOPRIM [Concomitant]
     Indication: INFECTION PROPHYLAXIS
     Route: 048
  11. SEVELAMER HYDROCHLORIDE [Concomitant]
     Indication: HYPERPHOSPHATAEMIA
     Route: 048
  12. PANCREATIN [Concomitant]
     Indication: CYSTIC FIBROSIS
     Route: 048
  13. ALFACALCIDOL [Concomitant]
     Indication: RENAL FAILURE
     Route: 048
  14. SODIUM POLYSTYRENE SULFONATE [Concomitant]
     Indication: RENAL FAILURE
     Route: 048
  15. PROPOFOL [Suspect]
     Indication: ANAESTHESIA
     Route: 042
     Dates: start: 20080610, end: 20080610

REACTIONS (5)
  - BLOOD PRESSURE DECREASED [None]
  - BRONCHOSPASM [None]
  - CARDIO-RESPIRATORY ARREST [None]
  - ELECTROCARDIOGRAM QT PROLONGED [None]
  - HYPERKALAEMIA [None]
